FAERS Safety Report 9563233 (Version 2)
Quarter: 2013Q3

REPORT INFORMATION
  Report Type: Report from Study
  Country: DE (occurrence: DE)
  Receive Date: 20130927
  Receipt Date: 20130927
  Transmission Date: 20140515
  Serious: Yes (Other)
  Sender: FDA-Public Use
  Company Number: DE-B.I. PHARMACEUTICALS,INC./RIDGEFIELD-2013-BI-28000DE

PATIENT
  Age: 37 Year
  Sex: Female
  Weight: 48 kg

DRUGS (1)
  1. DULCOLAX [Suspect]
     Dosage: 28 ANZ
     Route: 048
     Dates: start: 20130906

REACTIONS (3)
  - Drug abuse [Recovered/Resolved]
  - Abdominal pain [Recovered/Resolved]
  - Diarrhoea [Recovered/Resolved]
